FAERS Safety Report 14923529 (Version 6)
Quarter: 2024Q3

REPORT INFORMATION
  Report Type: Spontaneous
  Country: JP (occurrence: JP)
  Receive Date: 20180522
  Receipt Date: 20240905
  Transmission Date: 20241017
  Serious: Yes (Hospitalization, Other)
  Sender: PFIZER
  Company Number: JP-PFIZER INC-2018203570

PATIENT
  Age: 54 Year
  Sex: Female
  Weight: 38 kg

DRUGS (3)
  1. CISPLATIN [Suspect]
     Active Substance: CISPLATIN
     Indication: Oesophageal squamous cell carcinoma stage II
     Dosage: 6 MG, CYCLIC
     Dates: start: 201602
  2. DOCETAXEL [Suspect]
     Active Substance: DOCETAXEL\DOCETAXEL ANHYDROUS
     Indication: Oesophageal squamous cell carcinoma stage II
     Dosage: 60 MG, CYCLIC (1 DAY)
     Dates: start: 201602
  3. FLUOROURACIL [Suspect]
     Active Substance: FLUOROURACIL
     Indication: Oesophageal squamous cell carcinoma stage II
     Dosage: 350 MG, CYCLIC (5 DAYS)
     Dates: start: 201602

REACTIONS (3)
  - Nephritis bacterial [Recovered/Resolved]
  - Escherichia urinary tract infection [Recovered/Resolved]
  - Neutropenia [Recovering/Resolving]

NARRATIVE: CASE EVENT DATE: 20160101
